FAERS Safety Report 7925888-9 (Version None)
Quarter: 2011Q4

REPORT INFORMATION
  Report Type: 
  Country: None (occurrence: None)
  Receive Date: 20111118
  Receipt Date: 20110414
  Transmission Date: 20120403
  Serious: No
  Sender: FDA-Public Use
  Company Number: US-AMGEN-USASP2011019937

PATIENT
  Age: 56 Year
  Sex: Female

DRUGS (1)
  1. ENBREL [Suspect]
     Indication: PSORIATIC ARTHROPATHY
     Dosage: 50 MG, QWK
     Dates: start: 20090724

REACTIONS (8)
  - ABDOMINAL PAIN UPPER [None]
  - NAUSEA [None]
  - EPISTAXIS [None]
  - DIZZINESS [None]
  - SINUSITIS [None]
  - PRURITUS [None]
  - JOINT SWELLING [None]
  - MASS [None]
